FAERS Safety Report 8371205-2 (Version None)
Quarter: 2012Q2

REPORT INFORMATION
  Report Type: 
  Country: None (occurrence: None)
  Receive Date: 20120518
  Receipt Date: 20120511
  Transmission Date: 20120825
  Serious: Yes (Hospitalization, Other)
  Sender: FDA-Public Use
  Company Number: US-ABBOTT-12P-163-0934595-00

PATIENT
  Sex: Female

DRUGS (10)
  1. NIASPAN [Suspect]
  2. NEXIUM [Concomitant]
     Dosage: TITRATED DOWN TO DAILY AS MAINTENANCE
  3. NIASPAN [Suspect]
     Indication: FAMILIAL RISK FACTOR
  4. LEXAPRO [Concomitant]
     Indication: PRODUCT USED FOR UNKNOWN INDICATION
  5. ASPIRIN [Concomitant]
     Indication: PRODUCT USED FOR UNKNOWN INDICATION
     Dosage: QHS
     Route: 048
  6. NEXIUM [Concomitant]
     Indication: PRODUCT USED FOR UNKNOWN INDICATION
  7. DETROL [Concomitant]
     Indication: PRODUCT USED FOR UNKNOWN INDICATION
  8. FISH OIL [Concomitant]
     Indication: PRODUCT USED FOR UNKNOWN INDICATION
  9. BUFFERIN [Concomitant]
     Indication: ARTHRALGIA
     Route: 048
  10. VITAMIN D [Concomitant]
     Indication: PRODUCT USED FOR UNKNOWN INDICATION

REACTIONS (4)
  - ASTHENIA [None]
  - HAEMATOCRIT DECREASED [None]
  - GASTRIC ULCER [None]
  - PNEUMONIA [None]
